FAERS Safety Report 26007957 (Version 1)
Quarter: 2025Q4

REPORT INFORMATION
  Report Type: Spontaneous
  Country: US (occurrence: US)
  Receive Date: 20251106
  Receipt Date: 20251106
  Transmission Date: 20260117
  Serious: No
  Sender: PFIZER
  Company Number: US-PFIZER INC-202500216040

PATIENT
  Age: 26 Year
  Sex: Female

DRUGS (1)
  1. PAXLOVID [Suspect]
     Active Substance: NIRMATRELVIR\RITONAVIR
     Indication: COVID-19 treatment
     Dosage: 300MG; 100MG
     Dates: start: 20251020, end: 20251025

REACTIONS (5)
  - Nasal congestion [Recovering/Resolving]
  - Paranasal sinus discomfort [Recovering/Resolving]
  - Rhinorrhoea [Recovering/Resolving]
  - Throat irritation [Recovering/Resolving]
  - Cough [Recovering/Resolving]

NARRATIVE: CASE EVENT DATE: 20251029
